FAERS Safety Report 6974570-3 (Version None)
Quarter: 2010Q3

REPORT INFORMATION
  Report Type: 
  Country: None (occurrence: None)
  Receive Date: 20100909
  Receipt Date: 20100902
  Transmission Date: 20110219
  Serious: Yes (Other)
  Sender: FDA-Public Use
  Company Number: CA-AMGEN-KDL303840

PATIENT
  Sex: Male
  Weight: 111.2 kg

DRUGS (2)
  1. ENBREL [Suspect]
     Indication: PSORIATIC ARTHROPATHY
     Dates: start: 20080616, end: 20100701
  2. ALEVE (CAPLET) [Concomitant]

REACTIONS (10)
  - LOWER RESPIRATORY TRACT INFECTION [None]
  - PAIN IN EXTREMITY [None]
  - PARAESTHESIA [None]
  - PSORIASIS [None]
  - RASH PRURITIC [None]
  - THERAPEUTIC RESPONSE DECREASED [None]
  - VISION BLURRED [None]
  - VISUAL IMPAIRMENT [None]
  - WAIST CIRCUMFERENCE INCREASED [None]
  - WEIGHT INCREASED [None]
